FAERS Safety Report 5380452-3 (Version None)
Quarter: 2007Q3

REPORT INFORMATION
  Report Type: 
  Country: None (occurrence: None)
  Receive Date: 20070706
  Receipt Date: 20070625
  Transmission Date: 20080115
  Serious: Yes (Hospitalization)
  Sender: FDA-Public Use
  Company Number: US-ROCHE-504100

PATIENT
  Age: 49 Year
  Sex: Female

DRUGS (14)
  1. FUZEON [Suspect]
     Route: 065
  2. UNSPECIFIED DRUG [Concomitant]
     Dosage: REPORTED AS ^LAROSIN^
  3. ASPIRIN [Concomitant]
  4. ADVAIR DISKUS 100/50 [Concomitant]
  5. SINGULAIR [Concomitant]
  6. VENTOLIN [Concomitant]
  7. VITAMINS NOS [Concomitant]
  8. ALBUTEROL [Concomitant]
  9. VIRACEPT [Concomitant]
  10. LOMOTIL [Concomitant]
  11. DIOVAN [Concomitant]
     Dosage: REPORTED AS ^160/25^
  12. VIREAD [Concomitant]
  13. STAVUDINE [Concomitant]
  14. DIOVAN [Concomitant]
     Dosage: REPORTED AS ^320/25^

REACTIONS (5)
  - COMA [None]
  - HYPERSENSITIVITY [None]
  - INJECTION SITE ERYTHEMA [None]
  - INJECTION SITE SWELLING [None]
  - PNEUMONIA [None]
